FAERS Safety Report 5758433-7 (Version None)
Quarter: 2008Q2

REPORT INFORMATION
  Report Type: 
  Country: None (occurrence: None)
  Receive Date: 20080604
  Receipt Date: 20080604
  Transmission Date: 20081010
  Serious: Yes (Other)
  Sender: FDA-Public Use
  Company Number: A0731082A

PATIENT
  Sex: Female
  Weight: 131 kg

DRUGS (1)
  1. ALLI [Suspect]
     Indication: DRUG USE FOR UNKNOWN INDICATION

REACTIONS (7)
  - ASTHMA [None]
  - BLISTER [None]
  - COUGH [None]
  - DIZZINESS [None]
  - FATIGUE [None]
  - MULTIPLE ALLERGIES [None]
  - PAIN [None]
